FAERS Safety Report 14914116 (Version 1)
Quarter: 2018Q2

REPORT INFORMATION
  Report Type: Report from Study
  Country: None (occurrence: US)
  Receive Date: 20180518
  Receipt Date: 20180518
  Transmission Date: 20180711
  Serious: Yes (Hospitalization)
  Sender: FDA-Public Use
  Company Number: US-ABBVIE-18P-163-2355163-00

PATIENT
  Age: 37 Year
  Sex: Female
  Weight: 54.48 kg

DRUGS (18)
  1. MARINOL [Suspect]
     Active Substance: DRONABINOL
     Indication: VOMITING
  2. XANAX [Concomitant]
     Active Substance: ALPRAZOLAM
     Indication: DEPRESSION
  3. NEXIUM [Concomitant]
     Active Substance: ESOMEPRAZOLE MAGNESIUM
     Indication: PRODUCT USED FOR UNKNOWN INDICATION
  4. HYDROXYCHLOROQUINE [Concomitant]
     Active Substance: HYDROXYCHLOROQUINE
     Indication: RAYNAUD^S PHENOMENON
  5. SINGULAIR [Concomitant]
     Active Substance: MONTELUKAST SODIUM
     Indication: SEASONAL ALLERGY
  6. MARINOL [Suspect]
     Active Substance: DRONABINOL
     Indication: EATING DISORDER
     Route: 048
  7. MARINOL [Suspect]
     Active Substance: DRONABINOL
     Indication: NAUSEA
  8. HYDROCHLOROTHIAZIDE. [Concomitant]
     Active Substance: HYDROCHLOROTHIAZIDE
     Indication: HYPERTENSION
  9. XANAX [Concomitant]
     Active Substance: ALPRAZOLAM
     Indication: ANXIETY
  10. BOTOX [Concomitant]
     Active Substance: ONABOTULINUMTOXINA
     Indication: MIGRAINE
  11. MARINOL [Suspect]
     Active Substance: DRONABINOL
     Indication: NEURALGIA
  12. TOPAMAX [Concomitant]
     Active Substance: TOPIRAMATE
     Indication: NEUROPATHY PERIPHERAL
  13. METOPROLOL. [Concomitant]
     Active Substance: METOPROLOL
     Indication: HYPERTENSION
  14. HYDROXYCHLOROQUINE [Concomitant]
     Active Substance: HYDROXYCHLOROQUINE
     Indication: SJOGREN^S SYNDROME
  15. OXYBUTININ [Concomitant]
     Active Substance: OXYBUTYNIN
     Indication: BLADDER DISORDER
  16. POTASSIUM [Concomitant]
     Active Substance: POTASSIUM
     Indication: BLOOD POTASSIUM DECREASED
  17. XANAX [Concomitant]
     Active Substance: ALPRAZOLAM
     Indication: POST-TRAUMATIC STRESS DISORDER
  18. TOPAMAX [Concomitant]
     Active Substance: TOPIRAMATE
     Indication: ARTHRITIS

REACTIONS (6)
  - Pyrexia [Recovering/Resolving]
  - Blood urea nitrogen/creatinine ratio increased [Recovering/Resolving]
  - Dehydration [Recovering/Resolving]
  - Kidney enlargement [Not Recovered/Not Resolved]
  - Hypotension [Recovering/Resolving]
  - Infection [Recovering/Resolving]

NARRATIVE: CASE EVENT DATE: 20180507
